FAERS Safety Report 6084809-7 (Version None)
Quarter: 2009Q1

REPORT INFORMATION
  Report Type: 
  Country: None (occurrence: None)
  Receive Date: 20090218
  Receipt Date: 20090206
  Transmission Date: 20090719
  Serious: Yes (Other)
  Sender: FDA-Public Use
  Company Number: 09-000195

PATIENT
  Sex: Female

DRUGS (1)
  1. FEMCON FE [Suspect]
     Indication: OVARIAN CYST
     Dosage: 0.4 MCG/35 MG, ORAL
     Route: 048
     Dates: start: 20080601, end: 20080801

REACTIONS (3)
  - CARDIAC NEUROSIS [None]
  - DIZZINESS [None]
  - DYSPNOEA [None]
